FAERS Safety Report 13590977 (Version 4)
Quarter: 2017Q4

REPORT INFORMATION
  Report Type: Spontaneous
  Country: JP (occurrence: JP)
  Receive Date: 20170530
  Receipt Date: 20171215
  Transmission Date: 20180320
  Serious: Yes (Death, Hospitalization, Other)
  Sender: FDA-Public Use
  Company Number: JP-009507513-1704JPN001320J

PATIENT
  Age: 63 Year
  Sex: Male
  Weight: 75 kg

DRUGS (5)
  1. NERIPROCT [Concomitant]
     Active Substance: DIFLUCORTOLONE VALERATE\LIDOCAINE
     Dosage: 2.0 G, BID
     Route: 051
     Dates: start: 20170407, end: 20170420
  2. TAKEPRON [Concomitant]
     Active Substance: LANSOPRAZOLE
     Dosage: 30 MG, QD
     Route: 051
     Dates: start: 20170408, end: 20170412
  3. ADONA [Concomitant]
     Active Substance: CARBAZOCHROME SODIUM SULFONATE
     Dosage: 100 MG, QD
     Route: 051
     Dates: start: 20170408, end: 20170411
  4. TRANSAMIN [Concomitant]
     Active Substance: TRANEXAMIC ACID
     Dosage: 1000 MG, QD
     Route: 051
     Dates: start: 20170408, end: 20170411
  5. KEYTRUDA [Suspect]
     Active Substance: PEMBROLIZUMAB
     Indication: SQUAMOUS CELL CARCINOMA OF LUNG
     Dosage: 200 MG, Q3W
     Route: 041
     Dates: start: 20170323, end: 20170323

REACTIONS (4)
  - Pneumonia aspiration [Unknown]
  - Malignant neoplasm progression [Fatal]
  - Haematemesis [Recovered/Resolved]
  - Colitis [Recovered/Resolved]

NARRATIVE: CASE EVENT DATE: 2017
